FAERS Safety Report 5068946-1 (Version None)
Quarter: 2006Q3

REPORT INFORMATION
  Report Type: 
  Country: None (occurrence: None)
  Receive Date: 20060802
  Receipt Date: 20060721
  Transmission Date: 20061208
  Serious: Yes (Hospitalization, Other)
  Sender: FDA-Public Use
  Company Number: US-BRISTOL-MYERS SQUIBB COMPANY-13450473

PATIENT
  Age: 67 Year
  Sex: Female

DRUGS (1)
  1. KENALOG-40 [Suspect]
     Indication: DIABETIC RETINAL OEDEMA
     Route: 031
     Dates: start: 20060710

REACTIONS (1)
  - EYE INFLAMMATION [None]
